FAERS Safety Report 7577518 (Version 4)
Quarter: 2012Q4

REPORT INFORMATION
  Report Type: 
  Country: JP (occurrence: JP)
  Receive Date: 20100909
  Receipt Date: 20121107
  Transmission Date: 20130627
  Serious: Yes (Hospitalization, Other)
  Sender: FDA-Public Use
  Company Number: JP-BAYER-200914534BYL

PATIENT
  Age: 64 Year
  Sex: Male
  Weight: 53.5 kg

DRUGS (1)
  1. NEXAVAR [Suspect]
     Indication: RENAL CELL CARCINOMA
     Dosage: 400 mg (Daily Dose), , oral
     Route: 048
     Dates: start: 20091112, end: 20091117

REACTIONS (6)
  - Pyrexia [Not Recovered/Not Resolved]
  - Nephrotic syndrome [Recovering/Resolving]
  - Proteinuria [Recovering/Resolving]
  - Ascites [Recovering/Resolving]
  - Pericardial effusion [Recovering/Resolving]
  - Oedema [Recovering/Resolving]
